FAERS Safety Report 20406306 (Version 2)
Quarter: 2025Q3

REPORT INFORMATION
  Report Type: Spontaneous
  Country: US (occurrence: US)
  Receive Date: 20220131
  Receipt Date: 20250731
  Transmission Date: 20251021
  Serious: Yes (Other)
  Sender: TAKEDA
  Company Number: US-TAKEDA-2022TUS005108

PATIENT
  Sex: Female
  Weight: 86 kg

DRUGS (11)
  1. LIALDA [Suspect]
     Active Substance: MESALAMINE
     Indication: Colitis ulcerative
     Dosage: UNK UNK, QD
     Dates: start: 2017
  2. PENTASA [Suspect]
     Active Substance: MESALAMINE
     Indication: Colitis ulcerative
     Dosage: UNK, QD
     Dates: start: 2015, end: 2015
  3. ASACOL [Suspect]
     Active Substance: MESALAMINE
     Indication: Colitis ulcerative
  4. MESALAMINE [Suspect]
     Active Substance: MESALAMINE
     Indication: Colitis ulcerative
  5. LOSARTAN [Concomitant]
     Active Substance: LOSARTAN
     Indication: Hypertension
  6. OMEPRAZOLE [Concomitant]
     Active Substance: OMEPRAZOLE
  7. LATANOPROST [Concomitant]
     Active Substance: LATANOPROST
  8. FLONASE [Concomitant]
     Active Substance: FLUTICASONE PROPIONATE
  9. JANUVIA [Concomitant]
     Active Substance: SITAGLIPTIN PHOSPHATE
  10. ANASTROZOLE [Concomitant]
     Active Substance: ANASTROZOLE
  11. EFFEXOR [Concomitant]
     Active Substance: VENLAFAXINE HYDROCHLORIDE

REACTIONS (8)
  - Type 2 diabetes mellitus [Unknown]
  - Breast cancer [Unknown]
  - Oesophageal obstruction [Unknown]
  - Colitis ulcerative [Unknown]
  - Drug ineffective [Unknown]
  - Inability to afford medication [Unknown]
  - Product availability issue [Unknown]
  - Product use complaint [Unknown]

NARRATIVE: CASE EVENT DATE: 20170101
